FAERS Safety Report 19782821 (Version 4)
Quarter: 2022Q3

REPORT INFORMATION
  Report Type: Spontaneous
  Country: JP (occurrence: JP)
  Receive Date: 20210902
  Receipt Date: 20220901
  Transmission Date: 20221027
  Serious: Yes (Hospitalization, Other)
  Sender: FDA-Public Use
  Company Number: JP-DSPHARMA-2021DSP013151AA

PATIENT

DRUGS (23)
  1. LATUDA [Suspect]
     Active Substance: LURASIDONE HYDROCHLORIDE
     Indication: Schizophrenia
     Dosage: 40 MG, QD
     Route: 048
  2. LATUDA [Suspect]
     Active Substance: LURASIDONE HYDROCHLORIDE
     Dosage: 80 MG, QD
     Route: 048
  3. BLONANSERIN [Suspect]
     Active Substance: BLONANSERIN
     Indication: Schizophrenia
     Dosage: 80 MG, QD
     Route: 062
  4. BLONANSERIN [Suspect]
     Active Substance: BLONANSERIN
     Indication: Schizophrenia
     Dosage: 16 MG, QD
     Route: 048
  5. BLONANSERIN [Suspect]
     Active Substance: BLONANSERIN
     Dosage: 24 MG, QD
     Route: 048
  6. HALOPERIDOL [Suspect]
     Active Substance: HALOPERIDOL
     Indication: Product used for unknown indication
     Dosage: 24 MG, QD
     Route: 048
  7. HALOPERIDOL [Suspect]
     Active Substance: HALOPERIDOL
     Dosage: 7.5 MG, QD
     Route: 048
  8. AKINETON [Suspect]
     Active Substance: BIPERIDEN HYDROCHLORIDE
     Indication: Product used for unknown indication
     Dosage: 6 MG, QD
     Route: 048
  9. ESZOPICLONE [Suspect]
     Active Substance: ESZOPICLONE
     Indication: Product used for unknown indication
     Dosage: 1 MG, QD
     Route: 048
  10. HALOPERIDOL [Suspect]
     Active Substance: HALOPERIDOL
     Indication: Product used for unknown indication
     Dosage: 10 MG, BID
     Route: 042
  11. ARIPIPRAZOLE [Concomitant]
     Active Substance: ARIPIPRAZOLE
     Dosage: 24 MG, QD
     Route: 048
  12. ETIZOLAM [Concomitant]
     Active Substance: ETIZOLAM
     Dosage: 3 MG, QD
     Route: 048
  13. RILMAZAFONE HYDROCHLORIDE [Concomitant]
     Active Substance: RILMAZAFONE HYDROCHLORIDE
     Dosage: 4 MG, QD
     Route: 048
  14. FLUPHENAZINE DECANOATE [Concomitant]
     Active Substance: FLUPHENAZINE DECANOATE
     Dosage: 25 MG, Q4WEEKS
     Route: 030
  15. FLUPHENAZINE DECANOATE [Concomitant]
     Active Substance: FLUPHENAZINE DECANOATE
     Dosage: 50 MG, Q4WEEKS
     Route: 030
  16. SULTOPRIDE HYDROCHLORIDE [Concomitant]
     Active Substance: SULTOPRIDE HYDROCHLORIDE
     Dosage: 100MG-200MG, QD
     Route: 048
  17. SULTOPRIDE HYDROCHLORIDE [Concomitant]
     Active Substance: SULTOPRIDE HYDROCHLORIDE
     Dosage: 1500 MG, QD
     Route: 048
  18. OLANZAPINE [Concomitant]
     Active Substance: OLANZAPINE
     Dosage: 20 MG, QD
     Route: 048
  19. OLANZAPINE [Concomitant]
     Active Substance: OLANZAPINE
     Dosage: 30 MG, QD
     Route: 048
  20. FLUNITRAZEPAM [Concomitant]
     Active Substance: FLUNITRAZEPAM
     Dosage: 4 MG, QD
     Route: 065
  21. BELSOMRA [Concomitant]
     Active Substance: SUVOREXANT
     Dosage: 20 MG, QD
     Route: 065
  22. BROTIZOLAM [Concomitant]
     Active Substance: BROTIZOLAM
     Dosage: 0.25 MG, QD
     Route: 065
  23. BLOOD SUBSTITUTES AND PERFUSION SOLUTIONS [Concomitant]
     Dosage: UNK
     Route: 065

REACTIONS (11)
  - Gait disturbance [Recovered/Resolved]
  - Schizophrenia [Recovered/Resolved]
  - Intentional self-injury [Unknown]
  - Diet refusal [Recovered/Resolved]
  - Aversion [Recovered/Resolved]
  - Application site pruritus [Unknown]
  - Application site erythema [Unknown]
  - Diet refusal [Recovering/Resolving]
  - Aversion [Recovering/Resolving]
  - Application site erythema [Unknown]
  - Application site pruritus [Unknown]
